FAERS Safety Report 12433075 (Version 2)
Quarter: 2016Q3

REPORT INFORMATION
  Report Type: Spontaneous
  Country: FR (occurrence: FR)
  Receive Date: 20160603
  Receipt Date: 20160705
  Transmission Date: 20161109
  Serious: No
  Sender: FDA-Public Use
  Company Number: FR-BAYER-2016-107088

PATIENT
  Age: 15 Year
  Sex: Female

DRUGS (1)
  1. CLARITYNE [Suspect]
     Active Substance: LORATADINE
     Indication: SEASONAL ALLERGY
     Dosage: 10 MG, QD
     Route: 048
     Dates: start: 201206, end: 201605

REACTIONS (4)
  - Fatigue [Recovered/Resolved]
  - Pallor [Recovered/Resolved]
  - Vertigo [Recovered/Resolved]
  - Dizziness [Recovered/Resolved]

NARRATIVE: CASE EVENT DATE: 201603
